FAERS Safety Report 4982609-X (Version None)
Quarter: 2006Q2

REPORT INFORMATION
  Report Type: 
  Country: None (occurrence: None)
  Receive Date: 20060419
  Receipt Date: 20060410
  Transmission Date: 20061013
  Serious: Yes (Other)
  Sender: FDA-Public Use
  Company Number: 200610373BCC

PATIENT
  Age: 58 Year
  Sex: Female
  Weight: 95.2554 kg

DRUGS (4)
  1. ALEVE [Suspect]
     Indication: ARTHRITIS
     Dosage: 880 MG, TOTAL DAILY, ORAL
     Route: 048
     Dates: start: 20050101
  2. MOTRIN [Concomitant]
  3. TYLENOL (CAPLET) [Concomitant]
  4. CODEINE [Concomitant]

REACTIONS (1)
  - HAEMOPTYSIS [None]
